FAERS Safety Report 7723328-6 (Version None)
Quarter: 2011Q3

REPORT INFORMATION
  Report Type: 
  Country: None (occurrence: None)
  Receive Date: 20110901
  Receipt Date: 20110901
  Transmission Date: 20111222
  Serious: Yes (Other)
  Sender: FDA-Public Use
  Company Number: None

PATIENT
  Age: 55 Year
  Sex: Female
  Weight: 89.811 kg

DRUGS (2)
  1. BOTOX [Suspect]
     Indication: MIGRAINE
     Dates: start: 20110525, end: 20110525
  2. BOTOX [Suspect]
     Indication: TEMPOROMANDIBULAR JOINT SYNDROME
     Dates: start: 20110525, end: 20110525

REACTIONS (11)
  - CONDITION AGGRAVATED [None]
  - INCORRECT ROUTE OF DRUG ADMINISTRATION [None]
  - PARAESTHESIA [None]
  - ABDOMINAL PAIN UPPER [None]
  - INSOMNIA [None]
  - NEURITIS [None]
  - MUSCLE SPASMS [None]
  - HEADACHE [None]
  - BACK PAIN [None]
  - NECK PAIN [None]
  - GAIT DISTURBANCE [None]
